FAERS Safety Report 4681700-5 (Version None)
Quarter: 2005Q2

REPORT INFORMATION
  Report Type: 
  Country: None (occurrence: None)
  Receive Date: 20050603
  Receipt Date: 20030605
  Transmission Date: 20051028
  Serious: Yes (Hospitalization, Disabling, Other)
  Sender: FDA-Public Use
  Company Number: US-MERCK-0306USA00766

PATIENT
  Age: 67 Year
  Sex: Female

DRUGS (11)
  1. VIOXX [Suspect]
     Indication: SHOULDER PAIN
     Route: 048
     Dates: start: 20000101
  2. VIOXX [Suspect]
     Route: 065
  3. VIOXX [Suspect]
     Route: 065
  4. CAPTOPRIL MSD [Concomitant]
     Route: 048
     Dates: start: 20000101
  5. SYNTHROID [Concomitant]
     Route: 065
     Dates: start: 20000101
  6. PRILOSEC [Concomitant]
     Route: 048
     Dates: start: 20000101
  7. HUMULIN [Concomitant]
     Route: 065
     Dates: start: 20000101
  8. PLAVIX [Suspect]
     Route: 065
     Dates: start: 20000101
  9. GLUCOTROL XL [Concomitant]
     Route: 065
     Dates: start: 20000101
  10. EVISTA [Concomitant]
     Route: 065
     Dates: start: 20000101
  11. AMITRIPTYLINE HYDROCHLORIDE [Concomitant]
     Route: 065
     Dates: start: 20000101

REACTIONS (36)
  - ANGINA PECTORIS [None]
  - ARTHRALGIA [None]
  - ASTHENIA [None]
  - ATHEROSCLEROSIS [None]
  - CEREBROVASCULAR ACCIDENT [None]
  - CEREBROVASCULAR DISORDER [None]
  - CHONDROMALACIA [None]
  - CONVULSION [None]
  - DIABETES MELLITUS INADEQUATE CONTROL [None]
  - DIABETIC COMPLICATION [None]
  - DIABETIC NEUROPATHY [None]
  - DIVERTICULUM [None]
  - DIZZINESS [None]
  - EYE INJURY [None]
  - FALL [None]
  - FATIGUE [None]
  - GASTRITIS [None]
  - GASTROINTESTINAL HAEMORRHAGE [None]
  - HAEMORRHOIDAL HAEMORRHAGE [None]
  - HAND FRACTURE [None]
  - HYPERTENSION [None]
  - HYPOTENSION [None]
  - JOINT DISLOCATION [None]
  - LIGAMENT SPRAIN [None]
  - MENISCUS LESION [None]
  - MUSCLE SPASMS [None]
  - MYELODYSPLASTIC SYNDROME [None]
  - ORTHOSTATIC HYPOTENSION [None]
  - PAIN IN EXTREMITY [None]
  - PANCYTOPENIA [None]
  - PHARYNGITIS [None]
  - SUBCUTANEOUS ABSCESS [None]
  - SURGERY [None]
  - SYNCOPE [None]
  - UPPER RESPIRATORY TRACT INFECTION [None]
  - URINARY TRACT INFECTION [None]
